FAERS Safety Report 7545932-0 (Version None)
Quarter: 2011Q2

REPORT INFORMATION
  Report Type: 
  Country: None (occurrence: None)
  Receive Date: 20110614
  Receipt Date: 20110531
  Transmission Date: 20111010
  Serious: Yes (Other)
  Sender: FDA-Public Use
  Company Number: PHHY2011BR47717

PATIENT
  Sex: Female

DRUGS (17)
  1. ISORDIL [Concomitant]
     Dosage: 5 MG, UNK
  2. GELOK [Concomitant]
     Dosage: 25 MG, UNK
  3. BROMAZEPAM [Concomitant]
     Dosage: 2 MG, UNK
  4. DECADENIA [Concomitant]
     Dosage: 250 MG, UNK
  5. EXFORGE [Suspect]
     Dosage: 1 DF, UNK
  6. FORMOTEROL FUMARATE [Suspect]
     Dosage: 1 DF, UNK
  7. ALPRAZOLAM [Concomitant]
     Dosage: 2 MG, UNK
  8. APRESOLINE [Suspect]
     Dosage: 50 MG, UNK
  9. LIPITOR [Concomitant]
     Dosage: 20 MG, UNK
  10. CITROIDE [Concomitant]
     Dosage: 25 MG, UNK
  11. FIXICAL [Concomitant]
     Dosage: 600 MG, UNK
  12. MODURETIC 5-50 [Concomitant]
     Dosage: 1 DF, UNK
  13. VASTAREL [Concomitant]
     Dosage: 35 MG, UNK
  14. MONONITRAT [Concomitant]
     Dosage: 40 MG, UNK
  15. CLOPIDOGREL [Concomitant]
     Dosage: 75 MG, UNK
  16. IVABRADINE HYDROCHLORIDE [Concomitant]
     Dosage: 5 MG, UNK
  17. CITALOPRAM [Concomitant]
     Dosage: 20 MG, UNK

REACTIONS (5)
  - EPILEPSY [None]
  - CEREBROVASCULAR ACCIDENT [None]
  - CARDIAC DISORDER [None]
  - FEELING ABNORMAL [None]
  - OBSTRUCTION [None]
